FAERS Safety Report 6403287-9 (Version None)
Quarter: 2009Q4

REPORT INFORMATION
  Report Type: 
  Country: None (occurrence: None)
  Receive Date: 20091016
  Receipt Date: 20091006
  Transmission Date: 20100525
  Serious: Yes (Other)
  Sender: FDA-Public Use
  Company Number: JP-ABBOTT-09P-087-0601728-00

PATIENT
  Age: 79 Year
  Sex: Female

DRUGS (9)
  1. SEVOFLURANE [Suspect]
     Indication: MAINTENANCE OF ANAESTHESIA
     Route: 065
     Dates: start: 20090401, end: 20090401
  2. LEVOBUPIVACAINE INJECTION [Suspect]
     Indication: POSTOPERATIVE ANALGESIA
     Route: 008
     Dates: start: 20090401, end: 20090406
  3. ULTIVA [Concomitant]
     Indication: ANALGESIC THERAPY
     Route: 041
     Dates: start: 20090401, end: 20090401
  4. PROPOFOL [Concomitant]
     Indication: INDUCTION OF ANAESTHESIA
     Route: 065
     Dates: start: 20090401, end: 20090401
  5. ROCURONIUM BROMIDE [Concomitant]
     Indication: MUSCLE RELAXANT THERAPY
     Route: 042
     Dates: start: 20090401, end: 20090401
  6. PENTCILLIN [Concomitant]
     Indication: INFECTION PROPHYLAXIS
     Route: 041
     Dates: start: 20090401, end: 20090401
  7. EPHEDRINE [Concomitant]
     Indication: BLOOD PRESSURE DECREASED
     Route: 065
     Dates: start: 20090401, end: 20090401
  8. MEPIVACAINE HCL [Concomitant]
     Indication: EPIDURAL ANAESTHESIA
     Route: 041
     Dates: start: 20090401, end: 20090401
  9. NEOSTIGMINE METHYLSULPHATE/ATROPINE SULFATE [Concomitant]
     Indication: DRUG USE FOR UNKNOWN INDICATION
     Route: 042
     Dates: start: 20090401, end: 20090401

REACTIONS (1)
  - RESPIRATORY ARREST [None]
